FAERS Safety Report 10936253 (Version 1)
Quarter: 2015Q1

REPORT INFORMATION
  Report Type: Spontaneous
  Country: US (occurrence: None)
  Receive Date: 20150320
  Receipt Date: 20150320
  Transmission Date: 20150721
  Serious: Yes (Other)
  Sender: FDA-Public Use
  Company Number: None

PATIENT
  Age: 47 Year
  Sex: Female

DRUGS (1)
  1. ENBREL [Suspect]
     Active Substance: ETANERCEPT
     Indication: ANKYLOSING SPONDYLITIS
     Dosage: 1 INJECTION
     Route: 030

REACTIONS (4)
  - Hirsutism [None]
  - Menorrhagia [None]
  - Ovulation disorder [None]
  - Polymenorrhoea [None]

NARRATIVE: CASE EVENT DATE: 20150101
